FAERS Safety Report 23562231 (Version 1)
Quarter: 2024Q1

REPORT INFORMATION
  Report Type: Spontaneous
  Country: CH (occurrence: CH)
  Receive Date: 20240226
  Receipt Date: 20240226
  Transmission Date: 20240409
  Serious: Yes (Other)
  Sender: FDA-Public Use
  Company Number: CH-EPICPHARMA-CH-2024EPCLIT00254

PATIENT
  Sex: Male

DRUGS (4)
  1. GENTAMICIN SULFATE [Suspect]
     Active Substance: GENTAMICIN SULFATE
     Indication: Bacteraemia
     Route: 051
  2. GENTAMICIN SULFATE [Suspect]
     Active Substance: GENTAMICIN SULFATE
     Indication: Enterococcal infection
     Route: 042
  3. AMOXICILLIN [Concomitant]
     Active Substance: AMOXICILLIN
     Indication: Bacteraemia
     Route: 051
  4. AMOXICILLIN [Concomitant]
     Active Substance: AMOXICILLIN
     Route: 042

REACTIONS (3)
  - Nephropathy toxic [Unknown]
  - Renal impairment [Unknown]
  - Product use in unapproved indication [Unknown]
